FAERS Safety Report 4622351-8 (Version None)
Quarter: 2005Q1

REPORT INFORMATION
  Report Type: 
  Country: None (occurrence: None)
  Receive Date: 20050330
  Receipt Date: 20050321
  Transmission Date: 20050727
  Serious: Yes (Life-Threatening, Hospitalization)
  Sender: FDA-Public Use
  Company Number: US-KINGPHARMUSA00001-K200500407

PATIENT
  Age: 70 Year
  Sex: Male

DRUGS (1)
  1. ALTACE [Suspect]
     Indication: HYPERTENSION
     Route: 048

REACTIONS (4)
  - CHEST PAIN [None]
  - HEART RATE INCREASED [None]
  - MYALGIA [None]
  - VERTIGO [None]
